FAERS Safety Report 25026582 (Version 1)
Quarter: 2025Q1

REPORT INFORMATION
  Report Type: Spontaneous
  Country: ZA (occurrence: ZA)
  Receive Date: 20250301
  Receipt Date: 20250301
  Transmission Date: 20250409
  Serious: Yes (Other)
  Sender: MERCK SHARP & DOHME LLC
  Company Number: ZA-009507513-2258619

PATIENT
  Age: 1 Year

DRUGS (3)
  1. VARIVAX [Suspect]
     Active Substance: VARICELLA-ZOSTER VIRUS STRAIN OKA/MERCK LIVE ANTIGEN
     Indication: Prophylaxis
     Dates: start: 20250220
  2. HAVRIX JUNIOR [Suspect]
     Active Substance: HEPATITIS A VACCINE, INACTIVATED
     Dates: start: 20250220
  3. STERILE DILUENT (WATER) [Suspect]
     Active Substance: WATER
     Dates: start: 20250220

REACTIONS (2)
  - Rash [Recovering/Resolving]
  - Vaccination site pain [Unknown]

NARRATIVE: CASE EVENT DATE: 20250221
